FAERS Safety Report 8598719-4 (Version None)
Quarter: 2012Q3

REPORT INFORMATION
  Report Type: 
  Country: None (occurrence: None)
  Receive Date: 20120816
  Receipt Date: 20120808
  Transmission Date: 20120928
  Serious: No
  Sender: FDA-Public Use
  Company Number: US-ASTRAZENECA-2012SE55959

PATIENT
  Age: 62 Year
  Sex: Female

DRUGS (3)
  1. LIPITOR [Suspect]
  2. CRESTOR [Suspect]
     Route: 048
     Dates: start: 20040101
  3. BENICAR [Suspect]

REACTIONS (1)
  - BACK PAIN [None]
